FAERS Safety Report 23713338 (Version 1)
Quarter: 2024Q2

REPORT INFORMATION
  Report Type: Spontaneous
  Country: US (occurrence: None)
  Receive Date: 20240405
  Receipt Date: 20240405
  Transmission Date: 20240716
  Serious: Yes (Hospitalization)
  Sender: FDA-Public Use
  Company Number: None

PATIENT
  Age: 39 Year
  Sex: Male

DRUGS (2)
  1. TACROLIMUS [Suspect]
     Active Substance: TACROLIMUS
     Indication: Renal transplant
     Dosage: 5MG TWICE DAILY ORAL
     Route: 048
     Dates: start: 202401
  2. MYCOPHENOLIC ACID DR [Concomitant]

REACTIONS (3)
  - Loss of consciousness [None]
  - Ulcer [None]
  - Complications of transplant surgery [None]

NARRATIVE: CASE EVENT DATE: 20240320
